FAERS Safety Report 14044320 (Version 1)
Quarter: 2017Q4

REPORT INFORMATION
  Report Type: Spontaneous
  Country: US (occurrence: US)
  Receive Date: 20171004
  Receipt Date: 20171004
  Transmission Date: 20180321
  Serious: Yes (Other)
  Sender: FDA-Public Use
  Company Number: US-BEH-2017084010

PATIENT
  Sex: Female
  Weight: 147.39 kg

DRUGS (25)
  1. LANTUS [Concomitant]
     Active Substance: INSULIN GLARGINE
  2. EPINEPHRINE. [Concomitant]
     Active Substance: EPINEPHRINE
  3. LOSARTAN. [Concomitant]
     Active Substance: LOSARTAN
  4. GLIMEPIRIDE. [Concomitant]
     Active Substance: GLIMEPIRIDE
  5. NEXIUM [Concomitant]
     Active Substance: ESOMEPRAZOLE MAGNESIUM
  6. ZEMAIRA [Suspect]
     Active Substance: .ALPHA.1-PROTEINASE INHIBITOR HUMAN
     Indication: EMPHYSEMA
     Dosage: 90 MG/KG, UNK
     Route: 042
     Dates: start: 20120912
  7. MELOXICAM. [Concomitant]
     Active Substance: MELOXICAM
  8. ZEMAIRA [Suspect]
     Active Substance: .ALPHA.1-PROTEINASE INHIBITOR HUMAN
     Dosage: UNK
     Route: 042
  9. POTASSIUM [Concomitant]
     Active Substance: POTASSIUM
  10. DIPHENHYDRAMINE. [Concomitant]
     Active Substance: DIPHENHYDRAMINE
  11. SODIUM CHLORIDE. [Concomitant]
     Active Substance: SODIUM CHLORIDE
  12. SYNTHROID [Concomitant]
     Active Substance: LEVOTHYROXINE SODIUM
  13. FERROUS SULFATE. [Concomitant]
     Active Substance: FERROUS SULFATE
  14. AVELOX [Concomitant]
     Active Substance: MOXIFLOXACIN HYDROCHLORIDE
  15. PROVIGIL [Concomitant]
     Active Substance: MODAFINIL
  16. ZOLOFT [Concomitant]
     Active Substance: SERTRALINE HYDROCHLORIDE
  17. SINGULAIR [Concomitant]
     Active Substance: MONTELUKAST SODIUM
  18. HYDROCHLOROTHIAZIDE. [Concomitant]
     Active Substance: HYDROCHLOROTHIAZIDE
  19. ALBUTEROL                          /00139501/ [Concomitant]
     Active Substance: ALBUTEROL
  20. ADVAIR HFA [Concomitant]
     Active Substance: FLUTICASONE PROPIONATE\SALMETEROL XINAFOATE
  21. PROAIR HFA [Concomitant]
     Active Substance: ALBUTEROL SULFATE
  22. LIDOCAINE. [Concomitant]
     Active Substance: LIDOCAINE
  23. FLUTICASONE FUROATE [Concomitant]
     Active Substance: FLUTICASONE FUROATE
  24. OXYGEN. [Concomitant]
     Active Substance: OXYGEN
  25. SIMVASTATIN. [Concomitant]
     Active Substance: SIMVASTATIN

REACTIONS (2)
  - Dysarthria [Unknown]
  - Facial paralysis [Unknown]
